FAERS Safety Report 7153515-X (Version None)
Quarter: 2010Q4

REPORT INFORMATION
  Report Type: 
  Country: None (occurrence: None)
  Receive Date: 20101213
  Receipt Date: 20101206
  Transmission Date: 20110411
  Serious: Yes (Hospitalization)
  Sender: FDA-Public Use
  Company Number: B0688655A

PATIENT
  Age: 28 Year
  Sex: Male

DRUGS (4)
  1. AUGMENTIN [Suspect]
     Indication: NOSOCOMIAL INFECTION
     Route: 042
  2. TAZOCIN [Concomitant]
     Route: 065
  3. POLYMYXIN [Concomitant]
     Route: 065
  4. UNASYN [Concomitant]
     Route: 065

REACTIONS (8)
  - BLISTER [None]
  - MOUTH ULCERATION [None]
  - PENILE ULCERATION [None]
  - PRURITUS [None]
  - RASH [None]
  - RASH ERYTHEMATOUS [None]
  - RASH MACULO-PAPULAR [None]
  - STEVENS-JOHNSON SYNDROME [None]
